FAERS Safety Report 7272851-X (Version None)
Quarter: 2011Q1

REPORT INFORMATION
  Report Type: 
  Country: None (occurrence: None)
  Receive Date: 20110203
  Receipt Date: 20090125
  Transmission Date: 20110831
  Serious: Yes (Other)
  Sender: FDA-Public Use
  Company Number: US-ASTRAZENECA-2009UW01463

PATIENT
  Age: 61 Year
  Sex: Male

DRUGS (3)
  1. NEXIUM [Suspect]
     Route: 048
     Dates: start: 20050101
  2. PRILOSEC OTC [Suspect]
     Route: 048
  3. NEXIUM [Suspect]
     Route: 048
     Dates: start: 20040101

REACTIONS (3)
  - NECK MASS [None]
  - DRUG DOSE OMISSION [None]
  - THROAT CANCER [None]
